FAERS Safety Report 5890893-3 (Version None)
Quarter: 2008Q3

REPORT INFORMATION
  Report Type: 
  Country: None (occurrence: None)
  Receive Date: 20080922
  Receipt Date: 20080916
  Transmission Date: 20090109
  Serious: Yes (Hospitalization)
  Sender: FDA-Public Use
  Company Number: US-KINGPHARMUSA00001-K200801083

PATIENT

DRUGS (5)
  1. ALTACE [Suspect]
     Dosage: 2.5 MG, QD
     Route: 048
     Dates: end: 20080310
  2. LASIX [Suspect]
     Dosage: 20 MG, QD
     Route: 048
     Dates: end: 20080307
  3. CORDARONE [Concomitant]
     Dosage: 200 MG, QD
     Route: 048
  4. PLAVIX [Concomitant]
     Dosage: 75 MG, QD
     Route: 048
  5. ARICEPT [Concomitant]
     Dosage: 10 MG, QD
     Route: 048

REACTIONS (6)
  - FALL [None]
  - HAEMORRHAGE [None]
  - HYPOTENSION [None]
  - LOSS OF CONSCIOUSNESS [None]
  - MALAISE [None]
  - SKIN LACERATION [None]
